FAERS Safety Report 6834103-9 (Version None)
Quarter: 2010Q3

REPORT INFORMATION
  Report Type: 
  Country: None (occurrence: None)
  Receive Date: 20100712
  Receipt Date: 20070414
  Transmission Date: 20110219
  Serious: No
  Sender: FDA-Public Use
  Company Number: US-PFIZER INC-2007030969

PATIENT
  Sex: Female
  Weight: 58.97 kg

DRUGS (7)
  1. CHANTIX [Suspect]
     Indication: SMOKING CESSATION THERAPY
     Route: 048
     Dates: start: 20060901, end: 20061001
  2. HYDROXYCHLOROQUINE [Concomitant]
  3. PREVACID [Concomitant]
  4. FEXOFENADINE [Concomitant]
  5. FLUTICASONE PROPIONATE [Concomitant]
  6. SOMA [Concomitant]
     Indication: PAIN
  7. LORTAB [Concomitant]
     Indication: PAIN

REACTIONS (2)
  - ABNORMAL DREAMS [None]
  - MIGRAINE WITH AURA [None]
